FAERS Safety Report 15484089 (Version 1)
Quarter: 2018Q4

REPORT INFORMATION
  Report Type: Spontaneous
  Country: DE (occurrence: DE)
  Receive Date: 20181010
  Receipt Date: 20181010
  Transmission Date: 20190205
  Serious: Yes (Other)
  Sender: FDA-Public Use
  Company Number: DE-MYLANLABS-2018M1074563

PATIENT
  Sex: Male

DRUGS (2)
  1. FORMATRIS 12 MIKROGRAMM NOVOLIZER [Suspect]
     Active Substance: FORMOTEROL FUMARATE
     Indication: PRODUCT USED FOR UNKNOWN INDICATION
     Dosage: UNK
  2. FORMATRIS 12 MIKROGRAMM NOVOLIZER [Suspect]
     Active Substance: FORMOTEROL FUMARATE
     Dosage: UNK

REACTIONS (1)
  - Haemoptysis [Recovered/Resolved]
